FAERS Safety Report 7788038-8 (Version None)
Quarter: 2011Q3

REPORT INFORMATION
  Report Type: 
  Country: None (occurrence: None)
  Receive Date: 20110927
  Receipt Date: 20110913
  Transmission Date: 20111222
  Serious: Yes (Death, Hospitalization, Other)
  Sender: FDA-Public Use
  Company Number: 009933

PATIENT
  Age: 78 Year
  Sex: Female

DRUGS (7)
  1. CARBAMAZEPINE [Suspect]
     Indication: RESTLESS LEGS SYNDROME
     Dosage: 100 MG, DAILY DOSE, ORAL
     Route: 048
     Dates: start: 20091201, end: 20100318
  2. OMEPRAZOLE [Suspect]
     Dosage: 20 MG, ORAL
     Route: 048
  3. CILOSTAZOL [Suspect]
     Dosage: 100 MG, DAILY DOSE, ORAL
     Route: 048
     Dates: start: 20100301, end: 20100318
  4. HYDROXYZINE [Concomitant]
  5. CETIRIZINE (CETITIZINE HYDROCHLORIDE) [Concomitant]
  6. SULPRIDE (SULPRIDE) [Concomitant]
  7. DEFLAZACORT (DEFLAZACORT) [Concomitant]

REACTIONS (8)
  - ACINETOBACTER TEST POSITIVE [None]
  - CARDIAC ARREST [None]
  - DRUG INTERACTION [None]
  - TOXIC EPIDERMAL NECROLYSIS [None]
  - STEVENS-JOHNSON SYNDROME [None]
  - STAPHYLOCOCCUS TEST POSITIVE [None]
  - ENTEROBACTER TEST POSITIVE [None]
  - SEPTIC SHOCK [None]
